FAERS Safety Report 6159341-2 (Version None)
Quarter: 2009Q2

REPORT INFORMATION
  Report Type: 
  Country: None (occurrence: None)
  Receive Date: 20090417
  Receipt Date: 20090408
  Transmission Date: 20091009
  Serious: Yes (Other)
  Sender: FDA-Public Use
  Company Number: US-AMGEN-US271739

PATIENT
  Sex: Female

DRUGS (4)
  1. PANITUMUMAB [Suspect]
     Indication: COLORECTAL CANCER
     Route: 042
     Dates: start: 20071016
  2. FLUOROURACIL [Suspect]
     Route: 040
     Dates: start: 20071030
  3. IRINOTECAN HCL [Suspect]
     Dates: start: 20071030
  4. LEUCOVORIN CALCIUM [Concomitant]

REACTIONS (1)
  - NEUTROPENIA [None]
